FAERS Safety Report 7042134-1 (Version None)
Quarter: 2010Q4

REPORT INFORMATION
  Report Type: 
  Country: None (occurrence: None)
  Receive Date: 20101013
  Receipt Date: 20091207
  Transmission Date: 20110411
  Serious: No
  Sender: FDA-Public Use
  Company Number: US-ASTRAZENECA-2009SE24784

PATIENT
  Sex: Male

DRUGS (2)
  1. SYMBICORT [Suspect]
     Indication: CHRONIC OBSTRUCTIVE PULMONARY DISEASE
     Dosage: 640 MICROGRAM
     Route: 055
     Dates: start: 20091001
  2. PROVENTIL [Concomitant]

REACTIONS (6)
  - DRUG EFFECT DELAYED [None]
  - ENERGY INCREASED [None]
  - MOOD ALTERED [None]
  - OROPHARYNGEAL PAIN [None]
  - SLEEP DISORDER [None]
  - THINKING ABNORMAL [None]
